FAERS Safety Report 11413507 (Version 1)
Quarter: 2015Q3

REPORT INFORMATION
  Report Type: Spontaneous
  Country: US (occurrence: US)
  Receive Date: 20150821
  Receipt Date: 20150821
  Transmission Date: 20151125
  Serious: No
  Sender: FDA-Public Use
  Company Number: US-ELI_LILLY_AND_COMPANY-US201206004223

PATIENT
  Age: 73 Year
  Sex: Male

DRUGS (5)
  1. HUMULIN N [Suspect]
     Active Substance: INSULIN HUMAN
     Dosage: 16 U, PRN
     Route: 058
     Dates: start: 20120605, end: 2012
  2. VICTOZA [Concomitant]
     Active Substance: LIRAGLUTIDE
     Dosage: UNK
     Dates: start: 201201, end: 201207
  3. HUMULIN N [Suspect]
     Active Substance: INSULIN HUMAN
     Indication: DIABETES MELLITUS
     Dosage: UNK UNK, PRN
     Route: 058
     Dates: start: 201112
  4. GLIMEPIRIDE. [Concomitant]
     Active Substance: GLIMEPIRIDE
     Dosage: 4 MG, UNKNOWN
     Dates: end: 201206
  5. HUMULIN N [Suspect]
     Active Substance: INSULIN HUMAN
     Dosage: 16 U, PRN
     Dates: start: 20120802

REACTIONS (5)
  - Urticaria [Not Recovered/Not Resolved]
  - Intentional product misuse [Recovered/Resolved]
  - Blood glucose increased [Unknown]
  - Rash generalised [Recovering/Resolving]
  - Drug hypersensitivity [Unknown]

NARRATIVE: CASE EVENT DATE: 201112
